FAERS Safety Report 8336955-2 (Version None)
Quarter: 2012Q2

REPORT INFORMATION
  Report Type: 
  Country: None (occurrence: None)
  Receive Date: 20120504
  Receipt Date: 20120501
  Transmission Date: 20120825
  Serious: Yes (Other)
  Sender: FDA-Public Use
  Company Number: JP-SANOFI-AVENTIS-2012SA021432

PATIENT
  Age: 76 Year
  Sex: Female

DRUGS (2)
  1. OXALIPLATIN [Suspect]
     Indication: COLON CANCER
     Route: 041
     Dates: start: 20120215, end: 20120215
  2. XELODA [Suspect]
     Indication: COLON CANCER
     Route: 048
     Dates: start: 20120215

REACTIONS (1)
  - URINARY RETENTION [None]
